FAERS Safety Report 4264789-7 (Version None)
Quarter: 2004Q1

REPORT INFORMATION
  Report Type: 
  Country: None (occurrence: None)
  Receive Date: 20040105
  Receipt Date: 20031218
  Transmission Date: 20041129
  Serious: Yes (Death, Hospitalization, Disabling, Other)
  Sender: FDA-Public Use
  Company Number: DSA_23762_2003

PATIENT
  Age: 22 Year
  Sex: Female
  Weight: 53 kg

DRUGS (7)
  1. LORAZEPAM [Suspect]
     Indication: ANXIETY
     Dosage: 2 MG TID PO
     Route: 048
     Dates: start: 19991231
  2. SANDOMIGRAN [Concomitant]
  3. PAROXETINE HCL [Concomitant]
  4. CLONAZEPAM [Concomitant]
  5. PROZAC [Concomitant]
  6. CLOPIXOL [Concomitant]
  7. VALPROIC ACID [Concomitant]

REACTIONS (40)
  - AGITATION [None]
  - AGORAPHOBIA [None]
  - ALCOHOLISM [None]
  - ANOREXIA [None]
  - ANXIETY [None]
  - ASTHENIA [None]
  - BLOOD PRESSURE INCREASED [None]
  - COMPLETED SUICIDE [None]
  - CONFUSIONAL STATE [None]
  - DEPRESSED MOOD [None]
  - DISORIENTATION [None]
  - DIZZINESS [None]
  - DRUG WITHDRAWAL SYNDROME [None]
  - DYSPNOEA [None]
  - FATIGUE [None]
  - FLUSHING [None]
  - HEADACHE [None]
  - HEARING IMPAIRED [None]
  - HEART RATE INCREASED [None]
  - HYPERVENTILATION [None]
  - INSOMNIA [None]
  - JUDGEMENT IMPAIRED [None]
  - MENTAL IMPAIRMENT [None]
  - MENTAL STATUS CHANGES [None]
  - MOOD SWINGS [None]
  - MUSCLE CRAMP [None]
  - MUSCLE RIGIDITY [None]
  - MUSCLE SPASMS [None]
  - NASAL CONGESTION [None]
  - PANIC ATTACK [None]
  - PARAESTHESIA [None]
  - PERSONALITY DISORDER [None]
  - PHARYNGOLARYNGEAL PAIN [None]
  - PHOTOPHOBIA [None]
  - PYREXIA [None]
  - RESPIRATORY RATE INCREASED [None]
  - SELF INJURIOUS BEHAVIOUR [None]
  - SKIN LACERATION [None]
  - TEARFULNESS [None]
  - WEIGHT DECREASED [None]
